FAERS Safety Report 7132532-X (Version None)
Quarter: 2010Q4

REPORT INFORMATION
  Report Type: 
  Country: None (occurrence: None)
  Receive Date: 20101202
  Receipt Date: 20101119
  Transmission Date: 20110411
  Serious: Yes (Other)
  Sender: FDA-Public Use
  Company Number: PHHY2010JP76407

PATIENT
  Age: 63 Year
  Sex: Female

DRUGS (2)
  1. CYCLOSPORINE [Suspect]
     Indication: NEPHROTIC SYNDROME
     Dosage: 150 MG, DAILY
     Dates: start: 20100101
  2. PREDNISOLONE [Concomitant]
     Dosage: 40 MG/DAY
     Route: 048

REACTIONS (3)
  - DIALYSIS [None]
  - MECHANICAL VENTILATION [None]
  - PULMONARY OEDEMA [None]
